FAERS Safety Report 17577842 (Version 2)
Quarter: 2020Q1

REPORT INFORMATION
  Report Type: Spontaneous
  Country: IT (occurrence: IT)
  Receive Date: 20200324
  Receipt Date: 20200327
  Transmission Date: 20200409
  Serious: Yes (Death, Other)
  Sender: FDA-Public Use
  Company Number: IT-TEVA-2020-IT-1208888

PATIENT
  Age: 6 Decade
  Sex: Male

DRUGS (7)
  1. TRABECTEDIN [Suspect]
     Active Substance: TRABECTEDIN
     Indication: LEIOMYOSARCOMA
     Dosage: OVER A 24 H CONTINUOUS INFUSION EVERY 3 WEEKS
     Route: 050
     Dates: start: 201611
  2. TRAMADOL. [Concomitant]
     Active Substance: TRAMADOL
     Indication: ABDOMINAL PAIN
     Route: 065
  3. GEMCITABINE. [Suspect]
     Active Substance: GEMCITABINE
     Indication: LEIOMYOSARCOMA
     Dosage: ON DAY 1 AND DAY 8 EVERY 3 WEEKS
     Route: 065
     Dates: start: 201507
  4. DOCETAXEL. [Suspect]
     Active Substance: DOCETAXEL
     Indication: LEIOMYOSARCOMA
     Dosage: ON DAY 8 EVERY 3 WEEKS
     Route: 065
     Dates: start: 201507
  5. PAZOPANIB [Concomitant]
     Active Substance: PAZOPANIB
     Indication: LEIOMYOSARCOMA
     Dosage: 800 MILLIGRAM DAILY;
     Route: 065
     Dates: end: 201706
  6. ERIBULIN MESYLATE [Suspect]
     Active Substance: ERIBULIN MESYLATE
     Indication: DEDIFFERENTIATED LIPOSARCOMA
     Dosage: ON DAY 1 AND DAY 8 OF A 21 DAYS CYCLE
     Route: 065
  7. IFOSFAMIDE. [Concomitant]
     Active Substance: IFOSFAMIDE
     Indication: LEIOMYOSARCOMA
     Dosage: 1000 MG/M2 DAILY; FOR 14 DAYS EVERY 28 DAYS
     Route: 050

REACTIONS (7)
  - Fatigue [Recovered/Resolved]
  - Febrile neutropenia [Unknown]
  - Nausea [Recovered/Resolved]
  - Drug ineffective [Unknown]
  - Thrombocytopenia [Unknown]
  - Alopecia [Recovered/Resolved]
  - Neutropenia [Recovered/Resolved]
